FAERS Safety Report 19188900 (Version 2)
Quarter: 2021Q2

REPORT INFORMATION
  Report Type: Spontaneous
  Country: US (occurrence: US)
  Receive Date: 20210428
  Receipt Date: 20210506
  Transmission Date: 20210717
  Serious: Yes (Other)
  Sender: FDA-Public Use
  Company Number: US-AMNEAL PHARMACEUTICALS-2021-AMRX-01295

PATIENT
  Sex: Male

DRUGS (1)
  1. ADRENACLICK [Suspect]
     Active Substance: EPINEPHRINE
     Indication: ALLERGY TO ARTHROPOD BITE
     Dosage: 0.3 MILLIGRAM AS NEEDED
     Route: 030
     Dates: start: 20210407, end: 20210407

REACTIONS (2)
  - Incorrect dose administered by device [Unknown]
  - Needle issue [Unknown]

NARRATIVE: CASE EVENT DATE: 20210407
